FAERS Safety Report 10111052 (Version 2)
Quarter: 2014Q2

REPORT INFORMATION
  Report Type: Spontaneous
  Country: US (occurrence: None)
  Receive Date: 20140421
  Receipt Date: 20140627
  Transmission Date: 20141212
  Serious: Yes (Hospitalization)
  Sender: FDA-Public Use
  Company Number: AEGR000289

PATIENT
  Age: 59 Year
  Sex: Female
  Weight: 102.5 kg

DRUGS (11)
  1. JUXTAPID [Suspect]
     Indication: TYPE IIA HYPERLIPIDAEMIA
     Route: 048
     Dates: start: 201312, end: 20140203
  2. ZETIA [Concomitant]
  3. ASPIRIN [Concomitant]
  4. NEURONTIN (GABAPENTIN) [Concomitant]
  5. CELEBREX (CELECOXIB) [Concomitant]
  6. AMITRIPTYLINE HCL [Concomitant]
  7. BENICAR HCT [Concomitant]
  8. VITAMIN C (ASCORBIC ACID) [Concomitant]
  9. CALCIUM CARBONATE [Concomitant]
  10. MULTIVITAMIN [Concomitant]
  11. NEXIUM (ESOMEPRAZOLE MAGNESIUM) [Concomitant]

REACTIONS (5)
  - Weight decreased [None]
  - Renal failure [None]
  - Asthenia [None]
  - Bedridden [None]
  - Diarrhoea [None]
